FAERS Safety Report 22062746 (Version 1)
Quarter: 2023Q1

REPORT INFORMATION
  Report Type: Other
  Country: FR (occurrence: FR)
  Receive Date: 20230306
  Receipt Date: 20230306
  Transmission Date: 20230418
  Serious: Yes (Hospitalization)
  Sender: FDA-Public Use
  Company Number: None

PATIENT

DRUGS (1)
  1. ACETAMINOPHEN [Suspect]
     Active Substance: ACETAMINOPHEN
     Indication: Pain
     Dosage: 10 GRAM, 1 TOTAL
     Route: 048
     Dates: start: 20230118, end: 20230118

REACTIONS (4)
  - Abdominal pain upper [Recovered/Resolved]
  - Transaminases increased [Recovered/Resolved]
  - Overdose [Recovered/Resolved]
  - Vomiting [Recovered/Resolved]

NARRATIVE: CASE EVENT DATE: 20230118
